FAERS Safety Report 25549506 (Version 1)
Quarter: 2025Q3

REPORT INFORMATION
  Report Type: Spontaneous
  Country: CN (occurrence: CN)
  Receive Date: 20250714
  Receipt Date: 20250714
  Transmission Date: 20251021
  Serious: Yes (Hospitalization, Other)
  Sender: SANOFI AVENTIS
  Company Number: CN-SA-2025SA193214

PATIENT
  Age: 69 Year
  Sex: Male
  Weight: 60 kg

DRUGS (34)
  1. PLAVIX [Suspect]
     Active Substance: CLOPIDOGREL BISULFATE
     Indication: Ischaemic cardiomyopathy
     Dosage: 75 MG, QD
     Route: 048
     Dates: start: 20250120, end: 20250626
  2. PLAVIX [Suspect]
     Active Substance: CLOPIDOGREL BISULFATE
     Indication: Cardiac failure
  3. PLAVIX [Suspect]
     Active Substance: CLOPIDOGREL BISULFATE
     Indication: Hypertension
  4. PLAVIX [Suspect]
     Active Substance: CLOPIDOGREL BISULFATE
     Indication: Atrial fibrillation
  5. PLAVIX [Suspect]
     Active Substance: CLOPIDOGREL BISULFATE
     Indication: Bacterial infection
  6. PLAVIX [Suspect]
     Active Substance: CLOPIDOGREL BISULFATE
     Indication: Pleural effusion
  7. PLAVIX [Suspect]
     Active Substance: CLOPIDOGREL BISULFATE
     Indication: Cholelithiasis
  8. PLAVIX [Suspect]
     Active Substance: CLOPIDOGREL BISULFATE
     Indication: Arteriosclerosis coronary artery
  9. INDOBUFEN [Suspect]
     Active Substance: INDOBUFEN
     Indication: Ischaemic cardiomyopathy
     Dosage: 0.1 G, QD
     Route: 048
     Dates: start: 20250120, end: 20250701
  10. INDOBUFEN [Suspect]
     Active Substance: INDOBUFEN
     Indication: Cardiac failure
  11. INDOBUFEN [Suspect]
     Active Substance: INDOBUFEN
     Indication: Hypertension
  12. INDOBUFEN [Suspect]
     Active Substance: INDOBUFEN
     Indication: Atrial fibrillation
  13. INDOBUFEN [Suspect]
     Active Substance: INDOBUFEN
     Indication: Bacterial infection
  14. INDOBUFEN [Suspect]
     Active Substance: INDOBUFEN
     Indication: Pleural effusion
  15. INDOBUFEN [Suspect]
     Active Substance: INDOBUFEN
     Indication: Cholelithiasis
  16. INDOBUFEN [Suspect]
     Active Substance: INDOBUFEN
     Indication: Arteriosclerosis coronary artery
  17. RIVAROXABAN [Concomitant]
     Active Substance: RIVAROXABAN
     Indication: Coronary artery disease
     Dosage: 10 MG, QD
  18. RIVAROXABAN [Concomitant]
     Active Substance: RIVAROXABAN
     Indication: Atrial fibrillation
  19. ROSUVASTATIN [Concomitant]
     Active Substance: ROSUVASTATIN
     Indication: Coronary artery disease
  20. ROSUVASTATIN [Concomitant]
     Active Substance: ROSUVASTATIN
     Indication: Atrial fibrillation
  21. FUROSEMIDE [Concomitant]
     Active Substance: FUROSEMIDE
     Indication: Coronary artery disease
     Dosage: 20 MG, QD
  22. FUROSEMIDE [Concomitant]
     Active Substance: FUROSEMIDE
     Indication: Atrial fibrillation
  23. SPIRONOLACTONE [Concomitant]
     Active Substance: SPIRONOLACTONE
     Indication: Coronary artery disease
     Dosage: 20 MG, QD
  24. SPIRONOLACTONE [Concomitant]
     Active Substance: SPIRONOLACTONE
     Indication: Atrial fibrillation
  25. DAPAGLIFLOZIN [Concomitant]
     Active Substance: DAPAGLIFLOZIN
     Indication: Coronary artery disease
     Dosage: 10 MG, QD
  26. DAPAGLIFLOZIN [Concomitant]
     Active Substance: DAPAGLIFLOZIN
     Indication: Atrial fibrillation
  27. SACUBITRIL\VALSARTAN [Concomitant]
     Active Substance: SACUBITRIL\VALSARTAN
     Indication: Coronary artery disease
     Dosage: 0.5 DF, BID
  28. SACUBITRIL\VALSARTAN [Concomitant]
     Active Substance: SACUBITRIL\VALSARTAN
     Indication: Atrial fibrillation
     Dosage: 50.000MG QD
     Route: 048
  29. BISOPROLOL FUMARATE [Concomitant]
     Active Substance: BISOPROLOL FUMARATE
     Indication: Coronary artery disease
     Dosage: 5.000MG QD
  30. BISOPROLOL FUMARATE [Concomitant]
     Active Substance: BISOPROLOL FUMARATE
     Indication: Atrial fibrillation
     Dosage: 5.000MG QD
  31. VERICIGUAT [Concomitant]
     Active Substance: VERICIGUAT
     Indication: Coronary artery disease
     Dosage: 0.5 DF, QD
  32. VERICIGUAT [Concomitant]
     Active Substance: VERICIGUAT
     Indication: Atrial fibrillation
  33. PANTOPRAZOLE SODIUM [Concomitant]
     Active Substance: PANTOPRAZOLE SODIUM
     Indication: Atrial fibrillation
     Dosage: 40 MG, QD
  34. PANTOPRAZOLE SODIUM [Concomitant]
     Active Substance: PANTOPRAZOLE SODIUM
     Indication: Coronary artery disease

REACTIONS (13)
  - Palpitations [Recovering/Resolving]
  - Chest discomfort [Recovering/Resolving]
  - Asthenia [Recovering/Resolving]
  - Abdominal discomfort [Recovering/Resolving]
  - Gastrooesophageal reflux disease [Recovering/Resolving]
  - Hiccups [Recovering/Resolving]
  - Amaurosis [Recovering/Resolving]
  - Chest discomfort [Recovering/Resolving]
  - Melaena [Recovering/Resolving]
  - Nausea [Recovering/Resolving]
  - Abdominal pain [Recovering/Resolving]
  - Dizziness [Recovering/Resolving]
  - Haematemesis [Recovering/Resolving]

NARRATIVE: CASE EVENT DATE: 20250630
